FAERS Safety Report 22222116 (Version 1)
Quarter: 2023Q2

REPORT INFORMATION
  Report Type: Spontaneous
  Country: US (occurrence: US)
  Receive Date: 20230418
  Receipt Date: 20230418
  Transmission Date: 20230721
  Serious: No
  Sender: FDA-Public Use
  Company Number: US-KVK-TECH, INC-20221100094

PATIENT
  Age: 50 Year
  Sex: Female
  Weight: 157 kg

DRUGS (1)
  1. PHENTERMINE HYDROCHLORIDE [Suspect]
     Active Substance: PHENTERMINE HYDROCHLORIDE
     Indication: Weight abnormal
     Dosage: UNK, UNKNOWN
     Route: 065

REACTIONS (3)
  - Appetite disorder [Unknown]
  - Dry mouth [Unknown]
  - Therapeutic response unexpected [Unknown]
